FAERS Safety Report 8607188 (Version 5)
Quarter: 2014Q1

REPORT INFORMATION
  Report Type: Spontaneous
  Country: US (occurrence: US)
  Receive Date: 20120611
  Receipt Date: 20140116
  Transmission Date: 20141002
  Serious: Yes (Hospitalization, Other)
  Sender: FDA-Public Use
  Company Number: US-ASTRAZENECA-2012SE34515

PATIENT
  Age: 75 Year
  Sex: Female
  Weight: 59 kg

DRUGS (32)
  1. NEXIUM [Suspect]
     Indication: GASTROOESOPHAGEAL REFLUX DISEASE
     Route: 048
     Dates: end: 2011
  2. NEXIUM [Suspect]
     Indication: DYSPEPSIA
     Route: 048
     Dates: end: 2011
  3. NEXIUM [Suspect]
     Indication: GASTROOESOPHAGEAL REFLUX DISEASE
     Route: 048
     Dates: start: 2002, end: 2011
  4. NEXIUM [Suspect]
     Indication: DYSPEPSIA
     Route: 048
     Dates: start: 2002, end: 2011
  5. NEXIUM [Suspect]
     Indication: GASTROOESOPHAGEAL REFLUX DISEASE
     Route: 048
     Dates: start: 20031107
  6. NEXIUM [Suspect]
     Indication: DYSPEPSIA
     Route: 048
     Dates: start: 20031107
  7. NEXIUM [Suspect]
     Indication: GASTROOESOPHAGEAL REFLUX DISEASE
     Route: 048
     Dates: start: 20041019
  8. NEXIUM [Suspect]
     Indication: DYSPEPSIA
     Route: 048
     Dates: start: 20041019
  9. CLINDAMYCIN [Concomitant]
     Dates: start: 20040210
  10. CIPRO [Concomitant]
     Dates: start: 20040318
  11. SINGULAIR [Concomitant]
     Dates: start: 20040927
  12. LISINOPRIL [Concomitant]
     Dates: start: 20041022
  13. TOPROL XL [Concomitant]
     Dates: start: 20041029
  14. KLOR CON M [Concomitant]
     Dates: start: 20041029
  15. RANITIDINE [Concomitant]
     Dates: start: 20110829
  16. METOCLOPRAMIDE [Concomitant]
     Dates: start: 20041222
  17. FOSAMAX [Concomitant]
     Dates: start: 20050118
  18. SYNTHROID [Concomitant]
     Dates: start: 20050119
  19. PREDNISONE [Concomitant]
     Dates: start: 20050211
  20. TRAMADOL HCL [Concomitant]
     Dates: start: 20050706
  21. LEVAQUIN [Concomitant]
     Dates: start: 20060628
  22. TRIMETHOPRIM [Concomitant]
     Dates: start: 20061101
  23. DICYCLOMINE [Concomitant]
     Dates: start: 20061101
  24. IMIPRAMINE HCL [Concomitant]
     Dates: start: 20061101
  25. PLAVIX [Concomitant]
     Dates: start: 20110725
  26. AMLODIPINE BESYLATE [Concomitant]
     Dates: start: 20111207
  27. PROMETHAZINE [Concomitant]
     Dates: start: 20120530
  28. MONTELUKAST SODIUM [Concomitant]
     Dates: start: 20130325
  29. HYDRALAZINE [Concomitant]
     Dates: start: 20130313
  30. PRAVASTATIN SODIUM [Concomitant]
     Dates: start: 20131120
  31. WARFARIN SODIUM [Concomitant]
     Dates: start: 20131125
  32. LOSARTAN POTASSIUM [Concomitant]
     Dates: start: 20131120

REACTIONS (13)
  - Thoracic vertebral fracture [Unknown]
  - Breast cancer [Unknown]
  - Intervertebral disc degeneration [Unknown]
  - Fall [Unknown]
  - Osteoporosis [Unknown]
  - Spinal fracture [Unknown]
  - Bone disorder [Unknown]
  - Cataract [Unknown]
  - Scleroderma [Unknown]
  - Rib fracture [Unknown]
  - Fibula fracture [Unknown]
  - Intervertebral disc protrusion [Unknown]
  - Ligament injury [Unknown]
